FAERS Safety Report 4732079-1 (Version None)
Quarter: 2005Q3

REPORT INFORMATION
  Report Type: 
  Country: None (occurrence: None)
  Receive Date: 20050722
  Receipt Date: 20050208
  Transmission Date: 20060218
  Serious: Yes (Life-Threatening)
  Sender: FDA-Public Use
  Company Number: 05P-087-0290064-00

PATIENT
  Age: 45 Year
  Sex: Male
  Weight: 86.637 kg

DRUGS (7)
  1. NORVIR [Suspect]
     Indication: HIV INFECTION
     Dosage: 99.9 MG, 2 IN 1 D, PER ORAL
     Route: 048
     Dates: start: 20041101, end: 20041130
  2. SCH417690/PLACEBO [Suspect]
     Indication: HIV INFECTION
     Dosage: 2 TABLET, 1 IN 1 D, PER ORAL
     Route: 048
     Dates: start: 20041112, end: 20041130
  3. ABACAVIR SULFATE [Concomitant]
  4. LOPINAVIR [Concomitant]
  5. ATENOLOL [Concomitant]
  6. DAPSONE [Concomitant]
  7. LISINOPRIL [Concomitant]

REACTIONS (1)
  - BLOOD TRIGLYCERIDES INCREASED [None]
